FAERS Safety Report 5824402-1 (Version None)
Quarter: 2008Q3

REPORT INFORMATION
  Report Type: 
  Country: None (occurrence: None)
  Receive Date: 20080728
  Receipt Date: 20080718
  Transmission Date: 20090109
  Serious: Yes (Life-Threatening)
  Sender: FDA-Public Use
  Company Number: A0739613A

PATIENT
  Age: 16 Year
  Sex: Female

DRUGS (1)
  1. AVAMYS [Suspect]
     Indication: RHINITIS
     Route: 045
     Dates: start: 20080717, end: 20080717

REACTIONS (8)
  - ANAPHYLACTOID REACTION [None]
  - AURICULAR SWELLING [None]
  - BURNING SENSATION [None]
  - DYSPNOEA [None]
  - EAR DISCOMFORT [None]
  - EYE IRRITATION [None]
  - NASAL CONGESTION [None]
  - URTICARIA [None]
